FAERS Safety Report 5012067-0 (Version None)
Quarter: 2006Q2

REPORT INFORMATION
  Report Type: 
  Country: None (occurrence: None)
  Receive Date: 20060526
  Receipt Date: 20060517
  Transmission Date: 20061013
  Serious: Yes (Other)
  Sender: FDA-Public Use
  Company Number: FR-GLAXOSMITHKLINE-B0424582A

PATIENT
  Age: 84 Year
  Sex: Male

DRUGS (5)
  1. ALKERAN [Suspect]
     Dosage: 40MG MONTHLY
     Route: 042
     Dates: start: 20050607, end: 20060128
  2. PROSCAR [Concomitant]
     Indication: PROSTATIC ADENOMA
     Route: 065
  3. NEXIUM [Concomitant]
     Indication: GASTRODUODENAL ULCER
     Route: 065
  4. SUCRALFATE [Concomitant]
     Indication: GASTRODUODENAL ULCER
     Route: 065
  5. COUMADIN [Concomitant]
     Route: 065

REACTIONS (3)
  - ANAEMIA [None]
  - PLASMACYTOSIS [None]
  - THROMBOCYTOPENIA [None]
